FAERS Safety Report 5081539-5 (Version None)
Quarter: 2006Q3

REPORT INFORMATION
  Report Type: 
  Country: None (occurrence: None)
  Receive Date: 20060811
  Receipt Date: 20060731
  Transmission Date: 20061208
  Serious: Yes (Death, Life-Threatening)
  Sender: FDA-Public Use
  Company Number: HQWYE170617MAR05

PATIENT
  Age: 62 Year
  Sex: Male
  Weight: 72.7 kg

DRUGS (4)
  1. MYLOTARG [Suspect]
     Indication: ACUTE MYELOID LEUKAEMIA
     Dosage: A SINGLE 10 MG DOSE , INTRAVENOUS
     Route: 042
     Dates: start: 20041124, end: 20041124
  2. CYTARABINE [Suspect]
  3. ETOPOSIDE [Suspect]
  4. NOVANTRONE [Suspect]

REACTIONS (10)
  - BILIRUBIN CONJUGATED INCREASED [None]
  - BLOOD BILIRUBIN INCREASED [None]
  - BLOOD CALCIUM DECREASED [None]
  - DRUG TOXICITY [None]
  - FLUID OVERLOAD [None]
  - HYPOVOLAEMIA [None]
  - PNEUMONIA [None]
  - RENAL FAILURE ACUTE [None]
  - RESPIRATORY DISTRESS [None]
  - WEIGHT INCREASED [None]
